APPROVED DRUG PRODUCT: LEVETIRACETAM
Active Ingredient: LEVETIRACETAM
Strength: 500MG/5ML (100MG/ML)
Dosage Form/Route: INJECTABLE;INTRAVENOUS
Application: A209781 | Product #001 | TE Code: AP
Applicant: HAINAN POLY PHARMACEUTICAL CO LTD
Approved: Mar 20, 2018 | RLD: No | RS: No | Type: RX